FAERS Safety Report 17000690 (Version 1)
Quarter: 2019Q4

REPORT INFORMATION
  Report Type: Spontaneous
  Country: US (occurrence: US)
  Receive Date: 20191106
  Receipt Date: 20191106
  Transmission Date: 20200122
  Serious: Yes (Other)
  Sender: FDA-Public Use
  Company Number: US-ROCHE-2453579

PATIENT
  Age: 59 Year
  Sex: Female

DRUGS (27)
  1. JAKAFI [Suspect]
     Active Substance: RUXOLITINIB
     Dosage: 15 MG IN AM AND 10 MG IN PM;ONGOING: ORAL
     Route: 048
  2. JAKAFI [Suspect]
     Active Substance: RUXOLITINIB
     Dosage: ONGOING: UNKNOWN
     Route: 048
  3. ASPIRIN [ACETYLSALICYLIC ACID] [Concomitant]
     Active Substance: ASPIRIN
  4. VITAMIN D3 [Concomitant]
     Active Substance: CHOLECALCIFEROL
  5. JAKAFI [Suspect]
     Active Substance: RUXOLITINIB
     Indication: MYELOFIBROSIS
     Dosage: ONGOING: UNKNOWN
     Route: 048
  6. BYSTOLIC [Concomitant]
     Active Substance: NEBIVOLOL HYDROCHLORIDE
  7. BUPROPION. [Concomitant]
     Active Substance: BUPROPION
  8. LOSARTAN. [Concomitant]
     Active Substance: LOSARTAN
  9. ANAGRELIDE. [Concomitant]
     Active Substance: ANAGRELIDE HYDROCHLORIDE
  10. JAKAFI [Suspect]
     Active Substance: RUXOLITINIB
     Indication: POLYCYTHAEMIA VERA
     Dosage: ONGOING: UNKNOWN
     Route: 048
     Dates: start: 20171103
  11. LIFITEGRAST [Concomitant]
     Active Substance: LIFITEGRAST
  12. EZETIMIBE. [Concomitant]
     Active Substance: EZETIMIBE
  13. PEGASYS [Suspect]
     Active Substance: PEGINTERFERON ALFA-2A
     Indication: PRODUCT USED FOR UNKNOWN INDICATION
     Dosage: 4 WEEKS;ONGOING: UNKNOWN
     Route: 065
     Dates: start: 20190822
  14. VALACYCLOVIR [Concomitant]
     Active Substance: VALACYCLOVIR HYDROCHLORIDE
  15. JAKAFI [Suspect]
     Active Substance: RUXOLITINIB
     Dosage: ONGOING: UNKNOWN
     Route: 048
  16. JAKAFI [Suspect]
     Active Substance: RUXOLITINIB
     Dosage: 10MG QAM AND 10MG QPM;7 DAYS;ONGOING: UNKNOWN
     Route: 048
  17. JAKAFI [Suspect]
     Active Substance: RUXOLITINIB
     Dosage: ONGOING: UNKNOWN
     Route: 048
  18. VIIBRYD [Concomitant]
     Active Substance: VILAZODONE HYDROCHLORIDE
  19. VITAMIN B6 [Concomitant]
     Active Substance: PYRIDOXINE HYDROCHLORIDE
  20. PEGASYS [Suspect]
     Active Substance: PEGINTERFERON ALFA-2A
     Dosage: 2 WEEKS: ONGOING: UNKNOWN
     Route: 065
  21. JAKAFI [Suspect]
     Active Substance: RUXOLITINIB
     Dosage: ONGOING: UNKNOWN
     Route: 048
  22. JAKAFI [Suspect]
     Active Substance: RUXOLITINIB
     Dosage: 15MG QAM AND 10MG QPM;ONGOING: UNKNOWN
     Route: 048
  23. JAKAFI [Suspect]
     Active Substance: RUXOLITINIB
     Dosage: ONGOING: UNKNOWN
     Route: 065
  24. ALPRAZOLAM. [Concomitant]
     Active Substance: ALPRAZOLAM
  25. BACTRIM [Concomitant]
     Active Substance: SULFAMETHOXAZOLE\TRIMETHOPRIM
  26. VITAMIN C [Concomitant]
     Active Substance: ASCORBIC ACID
  27. XIIDRA [Concomitant]
     Active Substance: LIFITEGRAST

REACTIONS (12)
  - Sjogren^s syndrome [Unknown]
  - Benign hepatic neoplasm [Unknown]
  - Nausea [Unknown]
  - Pyrexia [Unknown]
  - Blood pressure decreased [Recovered/Resolved]
  - Herpes virus infection [Unknown]
  - Asthenia [Unknown]
  - Haematochezia [Unknown]
  - Weight increased [Unknown]
  - Flatulence [Unknown]
  - Haemorrhage [Unknown]
  - Gastrointestinal sounds abnormal [Unknown]
